FAERS Safety Report 11365827 (Version 1)
Quarter: 2015Q3

REPORT INFORMATION
  Report Type: Spontaneous
  Country: US (occurrence: US)
  Receive Date: 20150811
  Receipt Date: 20150811
  Transmission Date: 20151125
  Serious: No
  Sender: FDA-Public Use
  Company Number: GXBR2015US001681

PATIENT

DRUGS (1)
  1. BUPROPION HCL TABLETS [Suspect]
     Active Substance: BUPROPION
     Indication: DEPRESSION
     Dosage: 75 MG, UNK
     Route: 048

REACTIONS (2)
  - Headache [Unknown]
  - Depression [Unknown]
